FAERS Safety Report 7938166-9 (Version None)
Quarter: 2011Q4

REPORT INFORMATION
  Report Type: 
  Country: None (occurrence: None)
  Receive Date: 20111123
  Receipt Date: 20111012
  Transmission Date: 20120403
  Serious: No
  Sender: FDA-Public Use
  Company Number: US-BRISTOL-MYERS SQUIBB COMPANY-16156630

PATIENT
  Age: 58 Year
  Sex: Female
  Weight: 102 kg

DRUGS (7)
  1. PRANDIN [Concomitant]
  2. DIABEN [Concomitant]
  3. VYTORIN [Concomitant]
     Dosage: 1 D.F:10-20
  4. ASPIRIN [Concomitant]
  5. ONGLYZA [Suspect]
     Indication: DIABETES MELLITUS
     Dates: start: 20110701
  6. METFORMIN [Concomitant]
  7. ASCORBIC ACID [Concomitant]

REACTIONS (2)
  - BLOOD CHOLESTEROL INCREASED [None]
  - GAMMA-GLUTAMYLTRANSFERASE INCREASED [None]
